FAERS Safety Report 7421535-3 (Version None)
Quarter: 2011Q1

REPORT INFORMATION
  Report Type: 
  Country: None (occurrence: None)
  Receive Date: 20110302
  Receipt Date: 20110111
  Transmission Date: 20110831
  Serious: No
  Sender: FDA-Public Use
  Company Number: 022252

PATIENT
  Sex: Female

DRUGS (3)
  1. CIMZIA [Suspect]
     Indication: CROHN'S DISEASE
     Dosage: 400 MG1X/MONTH SUBCUTANEOUS, SUBCUTANEOUS
     Route: 058
     Dates: start: 20100501
  2. CIMZIA [Suspect]
     Indication: CROHN'S DISEASE
     Dosage: 400 MG1X/MONTH SUBCUTANEOUS, SUBCUTANEOUS
     Route: 058
     Dates: start: 20100301, end: 20100101
  3. CHOLESTYRAMINE [Concomitant]

REACTIONS (5)
  - EYE SWELLING [None]
  - HYPERSENSITIVITY [None]
  - PRURITUS [None]
  - DRY SKIN [None]
  - SKIN EXFOLIATION [None]
